FAERS Safety Report 4388482-5 (Version None)
Quarter: 2004Q2

REPORT INFORMATION
  Report Type: 
  Country: None (occurrence: None)
  Receive Date: 20040624
  Receipt Date: 20040616
  Transmission Date: 20050107
  Serious: Yes (Life-Threatening, Hospitalization)
  Sender: FDA-Public Use
  Company Number: 2004215977GB

PATIENT
  Age: 6 Year
  Sex: Female

DRUGS (1)
  1. GENOTROPIN [Suspect]
     Indication: TURNER'S SYNDROME
     Dosage: 7 MG, WEEKLY/7 INJECT WEEK, UNK (SEE IMAGE)
     Route: 065
     Dates: start: 20010711

REACTIONS (6)
  - ABDOMINAL PAIN [None]
  - ENURESIS [None]
  - GANGLIONEUROMA [None]
  - LETHARGY [None]
  - POLYDIPSIA [None]
  - URINARY INCONTINENCE [None]
